FAERS Safety Report 9725766 (Version 2)
Quarter: 2014Q3

REPORT INFORMATION
  Report Type: Spontaneous
  Country: US (occurrence: US)
  Receive Date: 20131203
  Receipt Date: 20140711
  Transmission Date: 20150326
  Serious: No
  Sender: FDA-Public Use
  Company Number: US-JNJFOC-20131114015

PATIENT
  Age: 7 Decade
  Sex: Female
  Weight: 77.11 kg

DRUGS (3)
  1. SAPHRIS [Concomitant]
     Active Substance: ASENAPINE MALEATE
     Indication: PSYCHOTIC DISORDER
     Route: 048
     Dates: start: 2013
  2. INVEGA SUSTENNA [Suspect]
     Active Substance: PALIPERIDONE PALMITATE
     Indication: SCHIZOPHRENIA
     Route: 030
     Dates: start: 201311, end: 201311
  3. INVEGA SUSTENNA [Suspect]
     Active Substance: PALIPERIDONE PALMITATE
     Indication: SCHIZOPHRENIA
     Route: 030
     Dates: start: 201311

REACTIONS (6)
  - Musculoskeletal stiffness [Unknown]
  - Pain [Unknown]
  - Fall [Recovered/Resolved]
  - Inappropriate schedule of drug administration [Unknown]
  - Joint swelling [Unknown]
  - Extrapyramidal disorder [Unknown]

NARRATIVE: CASE EVENT DATE: 201311
